FAERS Safety Report 8589499-7 (Version None)
Quarter: 2012Q3

REPORT INFORMATION
  Report Type: 
  Country: None (occurrence: None)
  Receive Date: 20120813
  Receipt Date: 20120806
  Transmission Date: 20120928
  Serious: Yes (Other)
  Sender: FDA-Public Use
  Company Number: CA-ELI_LILLY_AND_COMPANY-CA201208002505

PATIENT
  Age: 90 Year
  Sex: Female

DRUGS (6)
  1. FORTEO [Suspect]
     Indication: OSTEOPOROSIS
     Dosage: 20 UG, QD
     Route: 058
     Dates: start: 20110609
  2. VITAMIN D [Concomitant]
  3. ADALAT [Concomitant]
  4. VALSARTAN [Concomitant]
  5. EFFEXOR [Concomitant]
  6. CALCIUM [Concomitant]

REACTIONS (1)
  - BREAST CANCER [None]
